FAERS Safety Report 7791765-X (Version None)
Quarter: 2011Q4

REPORT INFORMATION
  Report Type: 
  Country: None (occurrence: None)
  Receive Date: 20111003
  Receipt Date: 20110926
  Transmission Date: 20120403
  Serious: Yes (Other)
  Sender: FDA-Public Use
  Company Number: US-PFIZER INC-2011228794

PATIENT
  Age: 82 Year
  Sex: Female

DRUGS (1)
  1. SOLU-MEDROL [Suspect]

REACTIONS (1)
  - ANAPHYLACTOID REACTION [None]
